FAERS Safety Report 13021118 (Version 3)
Quarter: 2017Q1

REPORT INFORMATION
  Report Type: Spontaneous
  Country: IT (occurrence: IT)
  Receive Date: 20161213
  Receipt Date: 20170130
  Transmission Date: 20170428
  Serious: Yes (Other)
  Sender: FDA-Public Use
  Company Number: IT-009507513-1612ITA004978

PATIENT
  Age: 4 Month
  Sex: Male
  Weight: 3 kg

DRUGS (2)
  1. IMIPENEM [Suspect]
     Active Substance: IMIPENEM
     Indication: BACTERIAL SEPSIS
     Dosage: 50 MCG DAILY
     Route: 041
     Dates: start: 20161130, end: 20161202
  2. DAPTOMYCIN. [Suspect]
     Active Substance: DAPTOMYCIN
     Indication: SEPSIS
     Dosage: 32 MCG DAILY
     Route: 041
     Dates: start: 20161201, end: 20161202

REACTIONS (1)
  - Hepatitis acute [Not Recovered/Not Resolved]

NARRATIVE: CASE EVENT DATE: 20161202
